FAERS Safety Report 7490474-4 (Version None)
Quarter: 2011Q2

REPORT INFORMATION
  Report Type: 
  Country: None (occurrence: None)
  Receive Date: 20110519
  Receipt Date: 20110510
  Transmission Date: 20111010
  Serious: Yes (Other)
  Sender: FDA-Public Use
  Company Number: US-BAYER-2011-006374

PATIENT
  Age: 27 Year
  Sex: Female
  Weight: 80 kg

DRUGS (1)
  1. MIRENA [Suspect]
     Indication: CONTRACEPTION
     Dosage: 20 MCG/24HR, CONT
     Route: 015
     Dates: start: 20101213, end: 20101231

REACTIONS (5)
  - UTERINE PERFORATION [None]
  - ABDOMINAL PAIN [None]
  - DEVICE DISLOCATION [None]
  - MUSCLE SPASMS [None]
  - VAGINAL HAEMORRHAGE [None]
